FAERS Safety Report 17808432 (Version 5)
Quarter: 2023Q2

REPORT INFORMATION
  Report Type: Spontaneous
  Country: GR (occurrence: GR)
  Receive Date: 20200520
  Receipt Date: 20230606
  Transmission Date: 20230722
  Serious: Yes (Hospitalization, Other)
  Sender: FDA-Public Use
  Company Number: GR-NOVARTISPH-PHHY2018GR012406

PATIENT
  Age: 71 Year
  Sex: Female
  Weight: 43 kg

DRUGS (5)
  1. AMLODIPINE BESYLATE\OLMESARTAN MEDOXOMIL [Suspect]
     Active Substance: AMLODIPINE BESYLATE\OLMESARTAN MEDOXOMIL
     Indication: Hypertension
     Dosage: 1 DF, UNK (1UG/L) OLMESARTAN 40 MG AND AMLODIPINE 5 MG)
     Route: 048
  2. AMITRIPTYLINE [Suspect]
     Active Substance: AMITRIPTYLINE
     Indication: Depression
     Dosage: 50 MG, UNK (RECEIVING ABOUT 15 DAY BEFORE THE PRESENTATION)
     Route: 065
  3. DULOXETINE [Suspect]
     Active Substance: DULOXETINE
     Indication: Depression
     Dosage: 40 MG, UNK (RECEIVING ABOUT 15 DAY BEFORE THE PRESENTATION)
     Route: 065
  4. CLORAZEPATE DIPOTASSIUM [Suspect]
     Active Substance: CLORAZEPATE DIPOTASSIUM
     Indication: Depression
     Dosage: 15 MG, UNK (RECEIVING ABOUT 15 DAY BEFORE THE PRESENTATION)
     Route: 065
  5. VENLAFAXINE [Concomitant]
     Active Substance: VENLAFAXINE HYDROCHLORIDE
     Indication: Depression
     Dosage: 75 MG (DISCONTINUED 15 DAY BEFORE THE PRESENTATION)
     Route: 065

REACTIONS (6)
  - Weight decreased [Recovered/Resolved]
  - Intestinal villi atrophy [Recovered/Resolved]
  - Gastrointestinal disorder [Recovered/Resolved]
  - Diarrhoea [Recovered/Resolved]
  - Sprue-like enteropathy [Recovered/Resolved]
  - Oedema peripheral [Recovered/Resolved]
